FAERS Safety Report 24158899 (Version 2)
Quarter: 2024Q3

REPORT INFORMATION
  Report Type: Spontaneous
  Country: US (occurrence: US)
  Receive Date: 20240731
  Receipt Date: 20240810
  Transmission Date: 20241016
  Serious: No
  Sender: IRONSHORE PHARMA
  Company Number: US-Ironshore Pharmaceuticals Inc.-IRON20241016

PATIENT
  Age: 32 Year
  Sex: Male
  Weight: 113.6 kg

DRUGS (4)
  1. JORNAY PM EXTENDED-RELEASE [Suspect]
     Active Substance: METHYLPHENIDATE HYDROCHLORIDE
     Indication: Attention deficit hyperactivity disorder
     Dosage: 100 MG
     Route: 048
     Dates: start: 2024, end: 202406
  2. PROZAC [Concomitant]
     Active Substance: FLUOXETINE HYDROCHLORIDE
     Indication: Anxiety
     Dosage: 40 MG
     Route: 048
  3. TRAZODONE [Concomitant]
     Active Substance: TRAZODONE HYDROCHLORIDE
     Indication: Insomnia
     Dosage: 50 MG
     Route: 048
  4. TRAZODONE [Concomitant]
     Active Substance: TRAZODONE HYDROCHLORIDE
     Indication: Initial insomnia

REACTIONS (2)
  - Terminal insomnia [Recovered/Resolved]
  - Therapeutic product effect incomplete [None]

NARRATIVE: CASE EVENT DATE: 20240501
